FAERS Safety Report 21531341 (Version 1)
Quarter: 2022Q4

REPORT INFORMATION
  Report Type: Spontaneous
  Country: US (occurrence: None)
  Receive Date: 20221028
  Receipt Date: 20221028
  Transmission Date: 20230113
  Serious: No
  Sender: FDA-Public Use
  Company Number: None

PATIENT
  Age: 72 Year
  Sex: Male

DRUGS (1)
  1. BAMLANIVIMAB\ETESEVIMAB [Suspect]
     Active Substance: BAMLANIVIMAB\ETESEVIMAB
     Indication: Pain
     Dosage: 700MG/1400 MG ONCE IV? ?
     Route: 042
     Dates: start: 20211210, end: 20211210

REACTIONS (4)
  - Infusion related reaction [None]
  - Back pain [None]
  - Myalgia [None]
  - Refusal of treatment by patient [None]

NARRATIVE: CASE EVENT DATE: 20211210
